FAERS Safety Report 14684195 (Version 3)
Quarter: 2019Q2

REPORT INFORMATION
  Report Type: Spontaneous
  Country: US (occurrence: US)
  Receive Date: 20180327
  Receipt Date: 20190412
  Transmission Date: 20190711
  Serious: Yes (Other)
  Sender: FDA-Public Use
  Company Number: US-ASTRAZENECA-2018SE36205

PATIENT
  Age: 17490 Day
  Sex: Female

DRUGS (25)
  1. PRILOSEC [Suspect]
     Active Substance: OMEPRAZOLE MAGNESIUM
     Route: 048
     Dates: start: 198909, end: 201609
  2. PREVACID [Suspect]
     Active Substance: LANSOPRAZOLE
     Dosage: LANSOPRAZOLE
     Route: 048
  3. ALBUTEROL. [Concomitant]
     Active Substance: ALBUTEROL
  4. ZOFRAN [Concomitant]
     Active Substance: ONDANSETRON HYDROCHLORIDE
  5. LOPERAMIDE [Concomitant]
     Active Substance: LOPERAMIDE
  6. NEXIUM [Suspect]
     Active Substance: ESOMEPRAZOLE MAGNESIUM
     Route: 048
     Dates: start: 198909, end: 201609
  7. PREVACID 24 HR [Suspect]
     Active Substance: LANSOPRAZOLE
     Route: 065
  8. PRILOSEC [Suspect]
     Active Substance: OMEPRAZOLE MAGNESIUM
     Dosage: OMEPRAZOLE
     Route: 048
  9. PROTONIX [Suspect]
     Active Substance: PANTOPRAZOLE SODIUM
     Dosage: PANTOPRAZOLE
     Route: 065
  10. PERCOCET [Concomitant]
     Active Substance: ACETAMINOPHEN\OXYCODONE HYDROCHLORIDE
  11. FEXOFENADINE [Concomitant]
     Active Substance: FEXOFENADINE\FEXOFENADINE HYDROCHLORIDE
  12. INSULIN [Concomitant]
     Active Substance: INSULIN NOS
  13. PRILOSEC OTC [Suspect]
     Active Substance: OMEPRAZOLE MAGNESIUM
     Route: 048
  14. PREVACID [Suspect]
     Active Substance: LANSOPRAZOLE
     Route: 048
     Dates: start: 198909, end: 201609
  15. FAMOTIDINE. [Concomitant]
     Active Substance: FAMOTIDINE
  16. QUETIAPINE. [Concomitant]
     Active Substance: QUETIAPINE
  17. PROTONIX [Suspect]
     Active Substance: PANTOPRAZOLE SODIUM
     Route: 065
     Dates: start: 198909, end: 201609
  18. IMODIUM [Concomitant]
     Active Substance: LOPERAMIDE HYDROCHLORIDE
  19. GLIMEPIRIDE. [Concomitant]
     Active Substance: GLIMEPIRIDE
  20. PREGABALIN. [Concomitant]
     Active Substance: PREGABALIN
  21. NASONEX [Concomitant]
     Active Substance: MOMETASONE FUROATE
  22. NEXIUM [Suspect]
     Active Substance: ESOMEPRAZOLE MAGNESIUM
     Dosage: ESOMEPRAZOLE
     Route: 048
  23. NEXIUM 24HR [Suspect]
     Active Substance: ESOMEPRAZOLE MAGNESIUM
     Route: 048
  24. ADVAIR HFA [Concomitant]
     Active Substance: FLUTICASONE PROPIONATE\SALMETEROL XINAFOATE
  25. OXYCODONE [Concomitant]
     Active Substance: OXYCODONE

REACTIONS (3)
  - Acute kidney injury [Unknown]
  - Chronic kidney disease [Unknown]
  - Renal injury [Unknown]

NARRATIVE: CASE EVENT DATE: 20080410
